FAERS Safety Report 23531836 (Version 4)
Quarter: 2024Q1

REPORT INFORMATION
  Report Type: Other
  Country: CZ (occurrence: None)
  Receive Date: 20240216
  Receipt Date: 20240327
  Transmission Date: 20240409
  Serious: Yes (Other)
  Sender: FDA-Public Use
  Company Number: CZ-ROCHE-3508151

PATIENT
  Age: 10 Year
  Sex: Female
  Weight: 30 kg

DRUGS (3)
  1. GLOFITAMAB [Suspect]
     Active Substance: GLOFITAMAB
     Indication: Burkitt^s lymphoma
     Dosage: 4 HOUR INFUSION
     Route: 042
     Dates: start: 20240207
  2. GLOFITAMAB [Suspect]
     Active Substance: GLOFITAMAB
     Dosage: AS 4 HOUR INFUSION
     Route: 042
     Dates: start: 20240214
  3. GLOFITAMAB [Suspect]
     Active Substance: GLOFITAMAB
     Dosage: 4 HOUR INFUSION
     Route: 042
     Dates: start: 20240221

REACTIONS (1)
  - Cytokine release syndrome [Recovering/Resolving]
